FAERS Safety Report 8949473 (Version 1)
Quarter: 2012Q4

REPORT INFORMATION
  Report Type: 
  Country: GB (occurrence: GB)
  Receive Date: 20121206
  Receipt Date: 20121206
  Transmission Date: 20130627
  Serious: Yes (Life-Threatening)
  Sender: FDA-Public Use
  Company Number: GB-PFIZER INC-2012304613

PATIENT
  Age: 29 Year
  Sex: Female
  Weight: 44 kg

DRUGS (4)
  1. TAZOCIN [Suspect]
     Indication: CYSTIC FIBROSIS
     Dosage: 4 g, 3x/day
     Route: 051
     Dates: start: 20121023, end: 20121113
  2. TOBRAMYCIN [Concomitant]
     Dosage: UNK
     Route: 042
  3. FOSFOMYCIN [Concomitant]
     Route: 042
  4. CREON [Concomitant]
     Dosage: Strength: 10,000

REACTIONS (8)
  - White blood cell count decreased [Recovered/Resolved]
  - Pyrexia [Recovering/Resolving]
  - Hypotension [Recovered/Resolved]
  - Nausea [Recovered/Resolved]
  - Urticaria [Recovering/Resolving]
  - Injection site pain [Recovered/Resolved]
  - Septic shock [Recovered/Resolved with Sequelae]
  - Pain in extremity [Recovered/Resolved]
